FAERS Safety Report 8233405-1 (Version None)
Quarter: 2012Q1

REPORT INFORMATION
  Report Type: 
  Country: None (occurrence: None)
  Receive Date: 20120326
  Receipt Date: 20120320
  Transmission Date: 20120608
  Serious: Yes (Other)
  Sender: FDA-Public Use
  Company Number: US-VIROPHARMA INCORPORATED-20120216CINRY2658

PATIENT
  Sex: Female
  Weight: 113.5 kg

DRUGS (5)
  1. CINRYZE [Suspect]
     Indication: HEREDITARY ANGIOEDEMA
     Dates: start: 20120110, end: 20120217
  2. CINRYZE [Suspect]
     Dates: start: 20120218
  3. BERINERT [Suspect]
     Dosage: UNKNOWN
     Route: 065
     Dates: start: 20120205, end: 20120205
  4. BERINERT [Suspect]
     Indication: HEREDITARY ANGIOEDEMA
     Dosage: UNKNOWN
     Route: 065
     Dates: start: 20120204, end: 20120204
  5. BERINERT [Suspect]
     Dates: start: 20120214, end: 20120214

REACTIONS (11)
  - SINUS HEADACHE [None]
  - TRACHEOSTOMY MALFUNCTION [None]
  - CONVULSION [None]
  - FALL [None]
  - HEADACHE [None]
  - HEREDITARY ANGIOEDEMA [None]
  - MALAISE [None]
  - DYSPHAGIA [None]
  - POSTOPERATIVE ADHESION [None]
  - CHEST PAIN [None]
  - INFUSION RELATED REACTION [None]
